FAERS Safety Report 11012813 (Version 2)
Quarter: 2015Q2

REPORT INFORMATION
  Report Type: Spontaneous
  Country: US (occurrence: US)
  Receive Date: 20150411
  Receipt Date: 20150525
  Transmission Date: 20150821
  Serious: No
  Sender: FDA-Public Use
  Company Number: US-JNJFOC-20130102521

PATIENT
  Sex: Male
  Weight: 99.79 kg

DRUGS (2)
  1. REMICADE [Suspect]
     Active Substance: INFLIXIMAB
     Indication: RHEUMATOID ARTHRITIS
     Route: 042
     Dates: start: 2012
  2. STEROIDS NOS [Concomitant]
     Active Substance: UNSPECIFIED INGREDIENT
     Indication: RHEUMATOID ARTHRITIS
     Route: 065

REACTIONS (4)
  - Peripheral swelling [Not Recovered/Not Resolved]
  - Abasia [Not Recovered/Not Resolved]
  - Malaise [Not Recovered/Not Resolved]
  - Activities of daily living impaired [Not Recovered/Not Resolved]

NARRATIVE: CASE EVENT DATE: 2012
